FAERS Safety Report 20649264 (Version 3)
Quarter: 2023Q2

REPORT INFORMATION
  Report Type: Spontaneous
  Country: US (occurrence: US)
  Receive Date: 20220329
  Receipt Date: 20230623
  Transmission Date: 20230722
  Serious: Yes (Other)
  Sender: FDA-Public Use
  Company Number: US-PFIZER INC-202101063522

PATIENT
  Age: 57 Year
  Sex: Female

DRUGS (2)
  1. XELJANZ [Suspect]
     Active Substance: TOFACITINIB CITRATE
     Dosage: 5 MG, 1X/DAY
     Dates: start: 20210503, end: 202306
  2. LEFLUNOMIDE [Suspect]
     Active Substance: LEFLUNOMIDE
     Dosage: UNK

REACTIONS (12)
  - Syncope [Unknown]
  - Fatigue [Unknown]
  - Alopecia [Unknown]
  - Vision blurred [Unknown]
  - Brain fog [Unknown]
  - Fibromyalgia [Unknown]
  - Frustration tolerance decreased [Unknown]
  - Anxiety [Unknown]
  - Blood test abnormal [Unknown]
  - Headache [Unknown]
  - Product dose omission issue [Unknown]
  - Intentional product misuse [Unknown]
